FAERS Safety Report 5941840-7 (Version None)
Quarter: 2008Q4

REPORT INFORMATION
  Report Type: 
  Country: None (occurrence: None)
  Receive Date: 20081105
  Receipt Date: 20081031
  Transmission Date: 20090506
  Serious: Yes (Death)
  Sender: FDA-Public Use
  Company Number: DE-ASTRAZENECA-2008PK02390

PATIENT
  Age: 18241 Day
  Sex: Male
  Weight: 75.4 kg

DRUGS (3)
  1. NEXIUM [Suspect]
     Indication: GASTROOESOPHAGEAL REFLUX DISEASE
     Route: 048
     Dates: start: 20080807
  2. PF-00885706 [Suspect]
     Indication: GASTROOESOPHAGEAL REFLUX DISEASE
     Route: 048
     Dates: start: 20080918
  3. GAVISCON [Concomitant]
     Dates: start: 20080807

REACTIONS (1)
  - SUDDEN DEATH [None]
